FAERS Safety Report 12647155 (Version 1)
Quarter: 2016Q3

REPORT INFORMATION
  Report Type: Spontaneous
  Country: US (occurrence: US)
  Receive Date: 20160812
  Receipt Date: 20160812
  Transmission Date: 20161109
  Serious: No
  Sender: FDA-Public Use
  Company Number: US-BIOGEN-2016BI00276318

PATIENT
  Sex: Male

DRUGS (3)
  1. TYSABRI [Suspect]
     Active Substance: NATALIZUMAB
     Indication: MULTIPLE SCLEROSIS
     Route: 065
     Dates: start: 20090914, end: 20111216
  2. TYSABRI [Suspect]
     Active Substance: NATALIZUMAB
     Dates: start: 20140115
  3. TYSABRI [Suspect]
     Active Substance: NATALIZUMAB
     Dates: start: 20121210, end: 20130905

REACTIONS (1)
  - Insomnia [Unknown]
